FAERS Safety Report 10220319 (Version 4)
Quarter: 2014Q2

REPORT INFORMATION
  Report Type: Spontaneous
  Country: UA (occurrence: UA)
  Receive Date: 20140606
  Receipt Date: 20140620
  Transmission Date: 20141212
  Serious: Yes (Death, Hospitalization, Other)
  Sender: FDA-Public Use
  Company Number: UA-ROCHE-1408174

PATIENT
  Age: 39 Year
  Sex: Female
  Weight: 55 kg

DRUGS (1)
  1. ZELBORAF [Suspect]
     Indication: METASTATIC MALIGNANT MELANOMA
     Route: 048
     Dates: start: 20140416, end: 20140526

REACTIONS (10)
  - Brain oedema [Recovered/Resolved]
  - Convulsion [Recovered/Resolved]
  - Loss of consciousness [Recovered/Resolved]
  - Confusional state [Unknown]
  - Hallucination [Unknown]
  - Drug ineffective [Unknown]
  - Nausea [Recovered/Resolved]
  - Vomiting [Recovered/Resolved]
  - Skin exfoliation [Unknown]
  - Hepatic failure [Fatal]
